FAERS Safety Report 9012414 (Version 2)
Quarter: 2013Q1

REPORT INFORMATION
  Report Type: Spontaneous
  Country: JP (occurrence: JP)
  Receive Date: 20130114
  Receipt Date: 20130307
  Transmission Date: 20140127
  Serious: Yes (Hospitalization)
  Sender: FDA-Public Use
  Company Number: JP-SANOFI-AVENTIS-2013SA002437

PATIENT
  Age: 12 Month
  Sex: Female

DRUGS (3)
  1. CLAFORAN [Suspect]
     Indication: PYREXIA
     Dosage: FORM: CLAFORAN FOR INJECTION
     Route: 042
     Dates: start: 20121226, end: 20121226
  2. CEFSPAN [Suspect]
     Indication: RHINORRHOEA
     Dosage: FORM: FINE GRANULES 50 MG
     Route: 048
     Dates: start: 20121223, end: 20121225
  3. AMPICILLIN SODIUM/SULBACTAM SODIUM [Concomitant]
     Indication: INFECTION PROPHYLAXIS
     Route: 065

REACTIONS (1)
  - Thrombocytopenia [Recovered/Resolved]
